FAERS Safety Report 8961673 (Version 2)
Quarter: 2012Q4

REPORT INFORMATION
  Report Type: 
  Country: US (occurrence: US)
  Receive Date: 20121212
  Receipt Date: 20121217
  Transmission Date: 20130627
  Serious: Yes (Hospitalization, Other)
  Sender: FDA-Public Use
  Company Number: US-SANOFI-AVENTIS-2012SA089912

PATIENT
  Age: 62 Year
  Sex: Male

DRUGS (2)
  1. OPTICLICK [Suspect]
  2. LANTUS [Suspect]
     Dosage: Dose:60 unit(s)
     Route: 058

REACTIONS (2)
  - Myocardial infarction [Unknown]
  - Renal failure [Unknown]
